FAERS Safety Report 18622836 (Version 1)
Quarter: 2020Q4

REPORT INFORMATION
  Report Type: Spontaneous
  Country: US (occurrence: US)
  Receive Date: 20201215
  Receipt Date: 20201215
  Transmission Date: 20210114
  Serious: Yes (Death)
  Sender: FDA-Public Use
  Company Number: None

PATIENT
  Sex: Female

DRUGS (23)
  1. REPATHA [Suspect]
     Active Substance: EVOLOCUMAB
     Indication: TYPE IIA HYPERLIPIDAEMIA
     Dosage: OTHER DOSE:1ML PEN;?
     Route: 058
     Dates: start: 20200721
  2. HYDROCHLOROT [Concomitant]
     Active Substance: HYDROCHLOROTHIAZIDE
  3. HYDROMORPHON [Concomitant]
     Active Substance: HYDROMORPHONE
  4. METOPROL SUC ER [Concomitant]
     Active Substance: METOPROLOL SUCCINATE
  5. PROMETHAZINE [Concomitant]
     Active Substance: PROMETHAZINE HYDROCHLORIDE
  6. TRULANCE [Concomitant]
     Active Substance: PLECANATIDE
  7. TOPIRAMATE. [Concomitant]
     Active Substance: TOPIRAMATE
  8. TRIAM/HCTZ [Concomitant]
     Active Substance: HYDROCHLOROTHIAZIDE\TRIAMTERENE
  9. AJOVY [Concomitant]
     Active Substance: FREMANEZUMAB-VFRM
  10. METOPROLOL ER [Concomitant]
     Active Substance: METOPROLOL SUCCINATE
  11. PREDNISONE. [Concomitant]
     Active Substance: PREDNISONE
  12. PEG-3350/KCL SOL/SODIUM [Concomitant]
  13. DULOXETINE. [Concomitant]
     Active Substance: DULOXETINE
  14. PANTOPRAZOLE [Concomitant]
     Active Substance: PANTOPRAZOLE
  15. POT CHLORIDE ER [Concomitant]
  16. CYANOCOBALAM [Concomitant]
     Active Substance: CYANOCOBALAMIN
  17. DEXAMETHASONE. [Concomitant]
     Active Substance: DEXAMETHASONE
  18. NYSTATIN. [Concomitant]
     Active Substance: NYSTATIN
  19. OLMESA MEDOX [Concomitant]
  20. OXYCODONE AND ACETAMINOPHEN [Concomitant]
     Active Substance: ACETAMINOPHEN\OXYCODONE HYDROCHLORIDE
  21. AZITHROMYCIN ANHYDROUS. [Concomitant]
     Active Substance: AZITHROMYCIN ANHYDROUS
  22. ROPINIROLE. [Concomitant]
     Active Substance: ROPINIROLE
  23. HYD POL/CPM [Concomitant]

REACTIONS (1)
  - Death [None]
